FAERS Safety Report 8072951-0 (Version None)
Quarter: 2012Q1

REPORT INFORMATION
  Report Type: 
  Country: None (occurrence: None)
  Receive Date: 20120123
  Receipt Date: 20120111
  Transmission Date: 20120608
  Serious: Yes (Hospitalization)
  Sender: FDA-Public Use
  Company Number: 128624

PATIENT
  Age: 43 Year
  Sex: Female
  Weight: 40 kg

DRUGS (1)
  1. CISPLATIN [Suspect]
     Indication: ADENOCARCINOMA OF THE CERVIX
     Dosage: 60MG/M2 EVERY 4 WEEKS

REACTIONS (5)
  - VOMITING [None]
  - NAUSEA [None]
  - INTERNATIONAL NORMALISED RATIO INCREASED [None]
  - DECREASED APPETITE [None]
  - DRUG INTERACTION [None]
